FAERS Safety Report 13932390 (Version 1)
Quarter: 2017Q3

REPORT INFORMATION
  Report Type: Spontaneous
  Country: GB (occurrence: GB)
  Receive Date: 20170904
  Receipt Date: 20170904
  Transmission Date: 20171127
  Serious: Yes (Hospitalization, Other)
  Sender: FDA-Public Use
  Company Number: GB-SHIRE-GB201719348

PATIENT

DRUGS (3)
  1. ASPIRIN. [Concomitant]
     Active Substance: ASPIRIN
     Indication: PRODUCT USED FOR UNKNOWN INDICATION
  2. HYDROXYCARBAMIDE [Concomitant]
     Active Substance: HYDROXYUREA
     Indication: PRODUCT USED FOR UNKNOWN INDICATION
  3. AGRYLIN [Suspect]
     Active Substance: ANAGRELIDE HYDROCHLORIDE
     Indication: PRODUCT USED FOR UNKNOWN INDICATION
     Dosage: 1.5 MG, 2X/DAY:BID
     Route: 048
     Dates: end: 20170719

REACTIONS (5)
  - Pulmonary hypertension [Recovering/Resolving]
  - Cor pulmonale [Recovering/Resolving]
  - Pulmonary embolism [Recovering/Resolving]
  - Atrial fibrillation [Recovering/Resolving]
  - Acute coronary syndrome [Recovering/Resolving]
